FAERS Safety Report 15090779 (Version 1)
Quarter: 2018Q2

REPORT INFORMATION
  Report Type: Report from Study
  Country: CA (occurrence: CA)
  Receive Date: 20180629
  Receipt Date: 20180629
  Transmission Date: 20180711
  Serious: Yes (Other)
  Sender: FDA-Public Use
  Company Number: CA-JNJFOC-20180631523

PATIENT
  Age: 39 Year
  Sex: Female
  Weight: 64 kg

DRUGS (1)
  1. REMICADE [Suspect]
     Active Substance: INFLIXIMAB
     Indication: CROHN^S DISEASE
     Dosage: STRENGTH = 100 MG
     Route: 042
     Dates: start: 20140904

REACTIONS (4)
  - Beta haemolytic streptococcal infection [Recovered/Resolved]
  - Mastectomy [Unknown]
  - Hysterectomy [Unknown]
  - Breast reconstruction [Unknown]

NARRATIVE: CASE EVENT DATE: 201712
